FAERS Safety Report 4964841-4 (Version None)
Quarter: 2006Q2

REPORT INFORMATION
  Report Type: 
  Country: None (occurrence: None)
  Receive Date: 20060406
  Receipt Date: 20060404
  Transmission Date: 20061013
  Serious: Yes (Death, Hospitalization)
  Sender: FDA-Public Use
  Company Number: HU-BRISTOL-MYERS SQUIBB COMPANY-13335609

PATIENT
  Age: 55 Year

DRUGS (3)
  1. CISPLATIN [Suspect]
     Indication: METASTATIC GASTRIC CANCER
     Route: 041
     Dates: start: 20060302, end: 20060302
  2. TS-1 [Suspect]
     Indication: METASTATIC GASTRIC CANCER
     Route: 048
     Dates: start: 20060322, end: 20060322
  3. BLOOD TRANSFUSION [Concomitant]
     Indication: ANAEMIA
     Route: 042
     Dates: start: 20060320, end: 20060324

REACTIONS (2)
  - HYPERTENSION [None]
  - NAUSEA [None]
